FAERS Safety Report 22536253 (Version 2)
Quarter: 2023Q4

REPORT INFORMATION
  Report Type: Spontaneous
  Country: US (occurrence: US)
  Receive Date: 20230608
  Receipt Date: 20231113
  Transmission Date: 20240110
  Serious: Yes (Death, Other)
  Sender: FDA-Public Use
  Company Number: US-PFIZER INC-2020446885

PATIENT
  Age: 81 Year
  Sex: Female

DRUGS (1)
  1. IBRANCE [Suspect]
     Active Substance: PALBOCICLIB
     Indication: Osteoporosis
     Dosage: 100 MG

REACTIONS (4)
  - Death [Fatal]
  - Stress [Unknown]
  - Impaired driving ability [Unknown]
  - Off label use [Unknown]

NARRATIVE: CASE EVENT DATE: 20231103
